FAERS Safety Report 18703260 (Version 1)
Quarter: 2021Q1

REPORT INFORMATION
  Report Type: Spontaneous
  Country: US (occurrence: US)
  Receive Date: 20210105
  Receipt Date: 20210105
  Transmission Date: 20210419
  Serious: Yes (Other)
  Sender: FDA-Public Use
  Company Number: US-PFIZER INC-2020515376

PATIENT
  Age: 70 Year
  Sex: Male

DRUGS (1)
  1. SUNITINIB MALATE. [Suspect]
     Active Substance: SUNITINIB MALATE
     Indication: GASTROINTESTINAL STROMAL TUMOUR
     Dosage: UNK

REACTIONS (6)
  - Proteinuria [Unknown]
  - Nephrotic syndrome [Unknown]
  - Glomerulonephritis membranous [Unknown]
  - Oedema [Unknown]
  - Hypoalbuminaemia [Unknown]
  - Hypertension [Unknown]
